FAERS Safety Report 7492283-9 (Version None)
Quarter: 2011Q2

REPORT INFORMATION
  Report Type: 
  Country: None (occurrence: None)
  Receive Date: 20110519
  Receipt Date: 20110509
  Transmission Date: 20111010
  Serious: Yes (Hospitalization)
  Sender: FDA-Public Use
  Company Number: GB-TEVA-281508ISR

PATIENT
  Sex: Female

DRUGS (1)
  1. EPIRUBICIN [Suspect]
     Indication: BREAST CANCER
     Dosage: 4.7619 MG/M2;
     Route: 042

REACTIONS (1)
  - ISCHAEMIC STROKE [None]
